FAERS Safety Report 6291383-9 (Version None)
Quarter: 2009Q3

REPORT INFORMATION
  Report Type: 
  Country: None (occurrence: None)
  Receive Date: 20090729
  Receipt Date: 20090729
  Transmission Date: 20100115
  Serious: Yes (Hospitalization)
  Sender: FDA-Public Use
  Company Number: None

PATIENT
  Age: 71 Year
  Sex: Male
  Weight: 57 kg

DRUGS (4)
  1. WARFARIN SODIUM [Suspect]
     Indication: CEREBROVASCULAR ACCIDENT
     Dosage: 5 MG, OTHER, PO
     Route: 048
     Dates: start: 20090420, end: 20090507
  2. WARFARIN SODIUM [Suspect]
     Indication: VENOUS INSUFFICIENCY
     Dosage: 5 MG, OTHER, PO
     Route: 048
     Dates: start: 20090420, end: 20090507
  3. WARFARIN SODIUM [Suspect]
     Indication: CEREBROVASCULAR ACCIDENT
     Dosage: 2.5 MG, Q WEEK, PO
     Route: 048
     Dates: start: 20090420, end: 20090507
  4. WARFARIN SODIUM [Suspect]
     Indication: VENOUS INSUFFICIENCY
     Dosage: 2.5 MG, Q WEEK, PO
     Route: 048
     Dates: start: 20090420, end: 20090507

REACTIONS (8)
  - ANAEMIA [None]
  - ASTHENIA [None]
  - DECREASED APPETITE [None]
  - DYSPNOEA [None]
  - INTERNATIONAL NORMALISED RATIO INCREASED [None]
  - PLATELET COUNT DECREASED [None]
  - PYREXIA [None]
  - RESPIRATORY DEPRESSION [None]
